FAERS Safety Report 11730499 (Version 1)
Quarter: 2015Q4

REPORT INFORMATION
  Report Type: Spontaneous
  Country: US (occurrence: US)
  Receive Date: 20151112
  Receipt Date: 20151112
  Transmission Date: 20160304
  Serious: No
  Sender: FDA-Public Use
  Company Number: ALCN2015US006813

PATIENT
  Age: 88 Year
  Sex: Female

DRUGS (1)
  1. GENTEAL MILD TO MODERATE [Suspect]
     Active Substance: HYPROMELLOSE 2910 (4000 MPA.S)
     Indication: EYE IRRITATION
     Dosage: 1 GTT, TID
     Route: 047
     Dates: start: 20151028, end: 20151028

REACTIONS (1)
  - Nervousness [Recovering/Resolving]

NARRATIVE: CASE EVENT DATE: 20151028
